FAERS Safety Report 5314106-6 (Version None)
Quarter: 2007Q2

REPORT INFORMATION
  Report Type: 
  Country: None (occurrence: None)
  Receive Date: 20070426
  Receipt Date: 20070416
  Transmission Date: 20071010
  Serious: Yes (Death)
  Sender: FDA-Public Use
  Company Number: 2007SP006404

PATIENT
  Age: 58 Year
  Sex: Male

DRUGS (3)
  1. PEG-INTRON [Suspect]
     Indication: DRUG USE FOR UNKNOWN INDICATION
     Dosage: 150 MCG;
     Dates: start: 20061113, end: 20070402
  2. CORTISONE ACETATE [Concomitant]
  3. ELTOXIN [Concomitant]

REACTIONS (8)
  - FEELING COLD [None]
  - HAEMOGLOBIN DECREASED [None]
  - MYOCARDIAL ISCHAEMIA [None]
  - PETECHIAE [None]
  - PULMONARY OEDEMA [None]
  - PURPURA [None]
  - THROMBOCYTOPENIA [None]
  - WHITE BLOOD CELL COUNT DECREASED [None]
